FAERS Safety Report 16354020 (Version 1)
Quarter: 2019Q2

REPORT INFORMATION
  Report Type: Spontaneous
  Country: US (occurrence: US)
  Receive Date: 20190524
  Receipt Date: 20190524
  Transmission Date: 20190711
  Serious: Yes (Hospitalization, Other)
  Sender: FDA-Public Use
  Company Number: US-HIKMA PHARMACEUTICALS USA INC.-US-H14001-19-03604

PATIENT
  Sex: Male
  Weight: 24.2 kg

DRUGS (33)
  1. DAUNORUBICIN [Suspect]
     Active Substance: DAUNORUBICIN
     Indication: T-CELL TYPE ACUTE LEUKAEMIA
     Route: 042
     Dates: start: 201808
  2. CYTARABINE. [Suspect]
     Active Substance: CYTARABINE
     Route: 042
     Dates: start: 201810
  3. METHOTREXATE. [Suspect]
     Active Substance: METHOTREXATE
     Route: 037
     Dates: start: 201810
  4. CYTARABINE. [Suspect]
     Active Substance: CYTARABINE
     Route: 042
     Dates: start: 201811
  5. MERCAPTOPURINE. [Suspect]
     Active Substance: MERCAPTOPURINE
     Indication: T-CELL TYPE ACUTE LEUKAEMIA
     Route: 048
     Dates: start: 201810
  6. VINCRISTINE [Suspect]
     Active Substance: VINCRISTINE
     Route: 042
     Dates: start: 20190107
  7. NELARABINE [Suspect]
     Active Substance: NELARABINE
     Indication: T-CELL TYPE ACUTE LEUKAEMIA
     Route: 065
     Dates: start: 20180924
  8. CAPIZZI METHOTREXATE [Suspect]
     Active Substance: METHOTREXATE SODIUM
     Route: 042
  9. METHOTREXATE. [Suspect]
     Active Substance: METHOTREXATE
     Route: 037
     Dates: start: 20181112
  10. DEXAMETHASONE. [Suspect]
     Active Substance: DEXAMETHASONE
     Indication: T-CELL TYPE ACUTE LEUKAEMIA
     Route: 048
     Dates: start: 201808
  11. GENTAMICIN. [Suspect]
     Active Substance: GENTAMICIN
     Indication: T-CELL TYPE ACUTE LEUKAEMIA
     Route: 065
     Dates: start: 20181130
  12. VINCRISTINE [Suspect]
     Active Substance: VINCRISTINE
     Route: 042
     Dates: start: 20181020
  13. CYCLOPHOSPHAMIDE. [Suspect]
     Active Substance: CYCLOPHOSPHAMIDE
     Route: 042
     Dates: start: 20181105
  14. THIOGUANINE [Suspect]
     Active Substance: THIOGUANINE
     Indication: T-CELL TYPE ACUTE LEUKAEMIA
     Route: 065
     Dates: start: 201904
  15. METHOTREXATE. [Suspect]
     Active Substance: METHOTREXATE
     Indication: T-CELL TYPE ACUTE LEUKAEMIA
     Route: 037
     Dates: start: 201808
  16. METHOTREXATE. [Suspect]
     Active Substance: METHOTREXATE
     Route: 037
     Dates: start: 20190107
  17. METHOTREXATE. [Suspect]
     Active Substance: METHOTREXATE
     Route: 037
     Dates: start: 20190125
  18. METHOTREXATE. [Suspect]
     Active Substance: METHOTREXATE
     Route: 037
     Dates: start: 201904
  19. VINCRISTINE [Suspect]
     Active Substance: VINCRISTINE
     Route: 042
     Dates: start: 20190125
  20. CYTARABINE. [Suspect]
     Active Substance: CYTARABINE
     Route: 042
     Dates: start: 201904
  21. MERCAPTOPURINE. [Suspect]
     Active Substance: MERCAPTOPURINE
     Route: 048
     Dates: start: 201811
  22. CEFEPIME [Suspect]
     Active Substance: CEFEPIME HYDROCHLORIDE
     Indication: T-CELL TYPE ACUTE LEUKAEMIA
     Route: 042
     Dates: start: 20181129, end: 20181202
  23. CEFTAZIDIME. [Suspect]
     Active Substance: CEFTAZIDIME
     Indication: T-CELL TYPE ACUTE LEUKAEMIA
     Route: 042
     Dates: start: 20181202
  24. NELARABINE [Suspect]
     Active Substance: NELARABINE
     Route: 042
     Dates: start: 20190329, end: 20190402
  25. VINCRISTINE [Suspect]
     Active Substance: VINCRISTINE
     Indication: T-CELL TYPE ACUTE LEUKAEMIA
     Route: 042
     Dates: start: 201808
  26. PEGASPARGASE [Suspect]
     Active Substance: PEGASPARGASE
     Indication: T-CELL TYPE ACUTE LEUKAEMIA
     Route: 042
     Dates: start: 201808
  27. CYTARABINE. [Suspect]
     Active Substance: CYTARABINE
     Indication: T-CELL TYPE ACUTE LEUKAEMIA
     Route: 037
     Dates: start: 20180810
  28. CYTARABINE. [Suspect]
     Active Substance: CYTARABINE
     Route: 037
     Dates: start: 20180810
  29. VINCRISTINE [Suspect]
     Active Substance: VINCRISTINE
     Route: 042
     Dates: start: 20181227
  30. PEGASPARGASE [Suspect]
     Active Substance: PEGASPARGASE
     Route: 042
     Dates: start: 20181015
  31. PEGASPARGASE [Suspect]
     Active Substance: PEGASPARGASE
     Route: 042
     Dates: start: 20181228
  32. PEGASPARGASE [Suspect]
     Active Substance: PEGASPARGASE
     Route: 042
     Dates: start: 20190117
  33. CYCLOPHOSPHAMIDE. [Suspect]
     Active Substance: CYCLOPHOSPHAMIDE
     Indication: T-CELL TYPE ACUTE LEUKAEMIA
     Route: 042
     Dates: start: 201810

REACTIONS (6)
  - Febrile neutropenia [Unknown]
  - Pseudomonal sepsis [Unknown]
  - Headache [Unknown]
  - Haemoglobin decreased [Unknown]
  - Croup infectious [Unknown]
  - Influenza [Unknown]

NARRATIVE: CASE EVENT DATE: 2018
